FAERS Safety Report 16208221 (Version 3)
Quarter: 2020Q2

REPORT INFORMATION
  Report Type: Spontaneous
  Country: JP (occurrence: JP)
  Receive Date: 20190417
  Receipt Date: 20200513
  Transmission Date: 20200713
  Serious: Yes (Other)
  Sender: FDA-Public Use
  Company Number: PHJP2019JP004351

PATIENT
  Age: 22 Year
  Sex: Female

DRUGS (2)
  1. PREDONINE [Concomitant]
     Active Substance: PREDNISOLONE
     Indication: STILL^S DISEASE
     Dosage: 16 MG, QD
     Route: 048
  2. CICLOSPORIN [Suspect]
     Active Substance: CYCLOSPORINE
     Indication: STILL^S DISEASE
     Dosage: 120 MG, QD
     Route: 048

REACTIONS (8)
  - Cardiac valve vegetation [Unknown]
  - Central nervous system lesion [Unknown]
  - Aneurysm ruptured [Unknown]
  - Subarachnoid haemorrhage [Unknown]
  - Product use in unapproved indication [Unknown]
  - Endocarditis [Unknown]
  - Headache [Unknown]
  - Peripheral artery aneurysm [Unknown]
